FAERS Safety Report 8105733 (Version 2)
Quarter: 2013Q4

REPORT INFORMATION
  Report Type: Spontaneous
  Country: US (occurrence: US)
  Receive Date: 20110825
  Receipt Date: 20131127
  Transmission Date: 20140711
  Serious: Yes (Hospitalization, Other)
  Sender: FDA-Public Use
  Company Number: US-BAYER-2011-075668

PATIENT
  Age: 22 Year
  Sex: Female

DRUGS (8)
  1. YAZ [Suspect]
  2. YASMIN [Suspect]
  3. RESTASIS [Concomitant]
     Dosage: 0.05 %, UNK
     Dates: start: 20090715, end: 20090819
  4. CIMETIDINE [Concomitant]
     Dosage: 300 MG, TABLET
     Dates: start: 20090819
  5. PANTOPRAZOLE SODIUM [Concomitant]
     Dosage: 40 MG, TABLET
     Dates: start: 20090625, end: 20090828
  6. PROTONIX [Concomitant]
     Dosage: UNK
     Dates: start: 20090915
  7. ADIPEX [Concomitant]
     Indication: WEIGHT DECREASED
     Dosage: UNK
     Dates: start: 20090915
  8. DRYSOL [Concomitant]
     Dosage: UNK
     Dates: start: 20090819

REACTIONS (2)
  - Gallbladder injury [Unknown]
  - Cholecystitis acute [None]
